FAERS Safety Report 7884035-2 (Version None)
Quarter: 2011Q4

REPORT INFORMATION
  Report Type: 
  Country: None (occurrence: None)
  Receive Date: 20111102
  Receipt Date: 20111031
  Transmission Date: 20120403
  Serious: Yes (Death, Hospitalization, Other)
  Sender: FDA-Public Use
  Company Number: PHHY2011AR95376

PATIENT
  Sex: Female

DRUGS (1)
  1. EXELON [Suspect]
     Indication: AMNESIA
     Dosage: 9.5 MG (10 CM) 1 PATCH DAILY
     Route: 062
     Dates: start: 20110201

REACTIONS (3)
  - METASTASES TO LUNG [None]
  - PLEURAL EFFUSION [None]
  - PLEURAL HAEMORRHAGE [None]
